FAERS Safety Report 7786133-0 (Version None)
Quarter: 2011Q3

REPORT INFORMATION
  Report Type: 
  Country: None (occurrence: None)
  Receive Date: 20110929
  Receipt Date: 20110915
  Transmission Date: 20111222
  Serious: Yes (Other)
  Sender: FDA-Public Use
  Company Number: SE-AMGEN-SWESP2011047764

PATIENT
  Sex: Male

DRUGS (3)
  1. HORMONES [Concomitant]
     Indication: ENDOCRINE DISORDER
  2. NPLATE [Suspect]
     Indication: IDIOPATHIC THROMBOCYTOPENIC PURPURA
     Dosage: 1 MUG/KG, UNK
  3. NPLATE [Suspect]
     Dosage: 4 MUG/KG, UNK

REACTIONS (1)
  - THERAPEUTIC RESPONSE DECREASED [None]
